FAERS Safety Report 21123525 (Version 1)
Quarter: 2022Q3

REPORT INFORMATION
  Report Type: Spontaneous
  Country: None (occurrence: CN)
  Receive Date: 20220724
  Receipt Date: 20220724
  Transmission Date: 20221026
  Serious: Yes (Other)
  Sender: FDA-Public Use
  Company Number: CN-Jiangsu Hengrui Medicine Co., Ltd.-2131170

PATIENT
  Age: 44 Year
  Sex: Male
  Weight: 85 kg

DRUGS (3)
  1. OXALIPLATIN [Suspect]
     Active Substance: OXALIPLATIN
     Indication: Angiocentric lymphoma
     Route: 041
     Dates: start: 20220421, end: 20220421
  2. PEGASPARGASE [Suspect]
     Active Substance: PEGASPARGASE
     Route: 030
     Dates: start: 20220421, end: 20220421
  3. GEMCITABINE [Suspect]
     Active Substance: GEMCITABINE
     Route: 041
     Dates: start: 20220421, end: 20220421

REACTIONS (4)
  - Coagulopathy [Recovering/Resolving]
  - Nausea [Recovering/Resolving]
  - Vomiting [Recovering/Resolving]
  - Abdominal pain [Recovering/Resolving]

NARRATIVE: CASE EVENT DATE: 20220422
